FAERS Safety Report 7578216-5 (Version None)
Quarter: 2011Q2

REPORT INFORMATION
  Report Type: 
  Country: None (occurrence: None)
  Receive Date: 20110628
  Receipt Date: 20110623
  Transmission Date: 20111010
  Serious: Yes (Other)
  Sender: FDA-Public Use
  Company Number: B0720238A

PATIENT
  Age: 54 Year
  Sex: Male

DRUGS (4)
  1. FENOFIBRATE [Suspect]
  2. METFORMIN HCL [Concomitant]
  3. ROSIGLITAZONE [Suspect]
  4. ROSUVASTATIN [Concomitant]

REACTIONS (2)
  - DRUG INTERACTION [None]
  - HIGH DENSITY LIPOPROTEIN DECREASED [None]
